FAERS Safety Report 8926043 (Version 2)
Quarter: 2013Q1

REPORT INFORMATION
  Report Type: Spontaneous
  Country: US (occurrence: US)
  Receive Date: 20121126
  Receipt Date: 20130103
  Transmission Date: 20140127
  Serious: Yes (Hospitalization, Other)
  Sender: FDA-Public Use
  Company Number: US-JNJFOC-20120904395

PATIENT
  Age: 18 None
  Sex: Female

DRUGS (16)
  1. REMICADE [Suspect]
     Indication: COLITIS ULCERATIVE
     Dosage: 4 VIALS, 5TH INFUSION (DOSE: 5 MG/KG)
     Route: 042
     Dates: start: 20120906, end: 20120906
  2. REMICADE [Suspect]
     Indication: COLITIS ULCERATIVE
     Dosage: 5 MG/KG EVERY 6 TO 8 WEEKS
     Route: 042
  3. FLAGYL [Concomitant]
     Route: 065
  4. TYLENOL [Concomitant]
     Indication: PREMEDICATION
     Route: 065
     Dates: start: 20120609
  5. BENADRYL [Concomitant]
     Indication: PREMEDICATION
     Route: 048
     Dates: start: 20120609
  6. PREDNISONE [Concomitant]
     Indication: COLITIS ULCERATIVE
     Route: 065
  7. PREDNISONE [Concomitant]
     Indication: COLITIS ULCERATIVE
     Route: 065
  8. NYSTATIN [Concomitant]
     Route: 048
  9. NYSTATIN [Concomitant]
     Route: 048
  10. BENTYL [Concomitant]
     Route: 065
  11. LEVSIN [Concomitant]
     Route: 065
  12. MERCAPTOPURINE [Concomitant]
     Route: 065
  13. HYDROCODONE/ACETAMINOPHEN [Concomitant]
     Dosage: DOSE: 5 MG/325 MG
     Route: 065
  14. HYDROCODONE/APAP [Concomitant]
     Dosage: 5MG/3MG PRN
     Route: 065
  15. DIPHENHYDRAMINE [Concomitant]
     Indication: PREMEDICATION
     Route: 048
  16. ACETAMINOPHEN [Concomitant]
     Indication: PREMEDICATION
     Route: 048
     Dates: start: 20120609

REACTIONS (13)
  - Colitis ulcerative [Unknown]
  - Infusion related reaction [Recovered/Resolved]
  - Erythema [Recovered/Resolved]
  - Cough [Recovered/Resolved]
  - Drug hypersensitivity [Recovered/Resolved]
  - Dyspnoea [Recovered/Resolved]
  - Oropharyngeal pain [Recovered/Resolved]
  - Laryngeal oedema [Recovered/Resolved]
  - Hypotension [Recovered/Resolved]
  - Urticaria [Recovered/Resolved]
  - Tachycardia [Recovered/Resolved]
  - Periorbital oedema [Recovered/Resolved]
  - Hypersensitivity [Recovered/Resolved]
